FAERS Safety Report 4502635-4 (Version None)
Quarter: 2004Q4

REPORT INFORMATION
  Report Type: 
  Country: None (occurrence: None)
  Receive Date: 20040928
  Receipt Date: 20040601
  Transmission Date: 20050328
  Serious: No
  Sender: FDA-Public Use
  Company Number: 04P-163-0262619-00

PATIENT
  Age: 65 Year
  Sex: Female
  Weight: 54.4316 kg

DRUGS (9)
  1. HUMIRA [Suspect]
     Indication: RHEUMATOID ARTHRITIS
     Dosage: 40 MG, 1 IN 2 WK, SUBCUTANEOUS
     Route: 058
     Dates: start: 20031101
  2. CIMETIDINE [Concomitant]
  3. CONJUGATED ESTROGEN [Concomitant]
  4. FOLIC ACID [Concomitant]
  5. PREDNISONE [Concomitant]
  6. METOPROLOL [Concomitant]
  7. METHOTREXATE [Concomitant]
  8. ALPRAZOLAM [Concomitant]
  9. ISONIAZID [Concomitant]

REACTIONS (2)
  - INJECTION SITE BURNING [None]
  - PAIN [None]
